FAERS Safety Report 21538247 (Version 2)
Quarter: 2022Q4

REPORT INFORMATION
  Report Type: Spontaneous
  Country: BE (occurrence: BE)
  Receive Date: 20221102
  Receipt Date: 20221107
  Transmission Date: 20230113
  Serious: Yes (Other)
  Sender: FDA-Public Use
  Company Number: BE-NOVARTISPH-NVSC2022BE242956

PATIENT
  Weight: 1.47 kg

DRUGS (6)
  1. BISOPROLOL [Suspect]
     Active Substance: BISOPROLOL
     Indication: Foetal exposure during pregnancy
     Dosage: MATERNAL DOSE DURING PREGNANCY: 2.5 MG QD
     Route: 064
  2. UNSPECIFIED INGREDIENT [Suspect]
     Active Substance: UNSPECIFIED INGREDIENT
     Indication: Foetal exposure during pregnancy
     Dosage: MATERNAL DOSE DURING PREGNANCY: UNKNOWN
     Route: 064
  3. ASPIRIN [Suspect]
     Active Substance: ASPIRIN
     Indication: Foetal exposure during pregnancy
     Dosage: MATERNAL DOSE DURING PREGNANCY: 80 MG QD
     Route: 064
  4. RANITIDINE [Suspect]
     Active Substance: RANITIDINE
     Indication: Foetal exposure during pregnancy
     Dosage: MATERNAL DOSE DURING PREGNANCY: 300 MG QD
     Route: 064
  5. HALOPERIDOL [Suspect]
     Active Substance: HALOPERIDOL
     Indication: Foetal exposure during pregnancy
     Dosage: MATERNAL DOSE DURING PREGNANCY: UNK
     Route: 064
  6. LORAZEPAM [Suspect]
     Active Substance: LORAZEPAM
     Indication: Foetal exposure during pregnancy
     Dosage: MATERNAL DOSE DURING PREGNANCY: UNK
     Route: 064

REACTIONS (4)
  - Foetal growth restriction [Unknown]
  - Premature baby [Unknown]
  - Low birth weight baby [Unknown]
  - Foetal exposure during pregnancy [Unknown]
